FAERS Safety Report 19011459 (Version 1)
Quarter: 2021Q1

REPORT INFORMATION
  Report Type: Spontaneous
  Country: US (occurrence: US)
  Receive Date: 20210315
  Receipt Date: 20210315
  Transmission Date: 20210420
  Serious: Yes (Hospitalization)
  Sender: FDA-Public Use
  Company Number: None

PATIENT
  Age: 82 Year
  Sex: Male
  Weight: 48.99 kg

DRUGS (1)
  1. ACETYLCYSTEINE (ACETYLCYSTEINE 10% SOLN, INHL, 4ML) [Suspect]
     Active Substance: ACETYLCYSTEINE
     Indication: SECRETION DISCHARGE
     Route: 055
     Dates: start: 20210218, end: 20210218

REACTIONS (3)
  - Flushing [None]
  - Dizziness [None]
  - Dyspnoea [None]

NARRATIVE: CASE EVENT DATE: 20210218
